FAERS Safety Report 5457061-0 (Version None)
Quarter: 2007Q3

REPORT INFORMATION
  Report Type: 
  Country: None (occurrence: None)
  Receive Date: 20070918
  Receipt Date: 20070302
  Transmission Date: 20080115
  Serious: No
  Sender: FDA-Public Use
  Company Number: US-ASTRAZENECA-2006UW28009

PATIENT
  Age: 11 Year
  Sex: Male
  Weight: 71.7 kg

DRUGS (4)
  1. SEROQUEL [Suspect]
     Indication: ASPERGER'S DISORDER
     Dates: start: 20040121
  2. SEROQUEL [Suspect]
     Indication: AGGRESSION
     Dates: start: 20040121
  3. SEROQUEL [Suspect]
     Indication: HALLUCINATION, AUDITORY
     Dates: start: 20040121
  4. CLOMADINE [Concomitant]

REACTIONS (3)
  - DYSKINESIA [None]
  - EXCESSIVE EYE BLINKING [None]
  - TRISMUS [None]
